FAERS Safety Report 24696519 (Version 1)
Quarter: 2024Q4

REPORT INFORMATION
  Report Type: Spontaneous
  Country: US (occurrence: US)
  Receive Date: 20241204
  Receipt Date: 20241204
  Transmission Date: 20250115
  Serious: Yes (Other)
  Sender: MYLAN
  Company Number: US-MYLANLABS-2024M1106732

PATIENT
  Age: 70 Year
  Sex: Male

DRUGS (1)
  1. PREDNISONE [Suspect]
     Active Substance: PREDNISONE
     Indication: Tubulointerstitial nephritis
     Dosage: 60 MILLIGRAM, QD
     Route: 065

REACTIONS (3)
  - Rebound effect [Recovering/Resolving]
  - Tubulointerstitial nephritis [Recovering/Resolving]
  - Condition aggravated [Recovering/Resolving]
